FAERS Safety Report 5546493-8 (Version None)
Quarter: 2007Q4

REPORT INFORMATION
  Report Type: 
  Country: None (occurrence: None)
  Receive Date: 20071211
  Receipt Date: 20070210
  Transmission Date: 20080405
  Serious: No
  Sender: FDA-Public Use
  Company Number: US-AMGEN-KDL210818

PATIENT
  Sex: Female

DRUGS (1)
  1. ENBREL [Suspect]
     Indication: PSORIATIC ARTHROPATHY
     Dates: start: 20050630

REACTIONS (3)
  - DRUG EFFECT DECREASED [None]
  - INJECTION SITE PAIN [None]
  - PSORIATIC ARTHROPATHY [None]
